FAERS Safety Report 9284678 (Version 4)
Quarter: 2013Q2

REPORT INFORMATION
  Report Type: Spontaneous
  Country: ES (occurrence: ES)
  Receive Date: 20130513
  Receipt Date: 20130527
  Transmission Date: 20140414
  Serious: Yes (Other)
  Sender: FDA-Public Use
  Company Number: ES-RANBAXY-2013RR-68869

PATIENT
  Age: 10 Year
  Sex: Male

DRUGS (7)
  1. OXCARBAZEPINE [Suspect]
     Indication: ABNORMAL BEHAVIOUR
     Dosage: UNK
     Route: 065
  2. RISPERIDONE [Suspect]
     Indication: ABNORMAL BEHAVIOUR
     Dosage: UNK
     Route: 065
  3. HALOPERIDOL [Suspect]
     Indication: AGITATION
     Dosage: SINGLE
     Route: 065
  4. HALOPERIDOL [Suspect]
     Indication: AGGRESSION
  5. CEFOTAXIME [Concomitant]
     Indication: PRODUCT USED FOR UNKNOWN INDICATION
     Dosage: UNK
     Route: 065
  6. VANCOMYCIN [Concomitant]
     Indication: PRODUCT USED FOR UNKNOWN INDICATION
     Dosage: UNK
     Route: 042
  7. METHYLPHENIDATE [Concomitant]
     Indication: ABNORMAL BEHAVIOUR
     Dosage: UNK
     Route: 065

REACTIONS (2)
  - Neuroleptic malignant syndrome [Recovered/Resolved]
  - Rash generalised [Recovered/Resolved]
